FAERS Safety Report 9095220 (Version 2)
Quarter: 2013Q3

REPORT INFORMATION
  Report Type: Spontaneous
  Country: US (occurrence: US)
  Receive Date: 20130201
  Receipt Date: 20130711
  Transmission Date: 20140515
  Serious: No
  Sender: FDA-Public Use
  Company Number: US-PFIZER INC-2013038722

PATIENT
  Age: 43 Year
  Sex: Male
  Weight: 72.56 kg

DRUGS (2)
  1. ZYVOX [Suspect]
     Indication: ARTHRITIS INFECTIVE
     Dosage: 600 MG, 2X/DAY
     Dates: start: 20130121
  2. AMOXICILLIN\CLAVULANATE POTASSIUM [Suspect]
     Indication: ARTHRITIS INFECTIVE
     Dosage: 875 MG, 2X/DAY

REACTIONS (3)
  - Insomnia [Not Recovered/Not Resolved]
  - Dry skin [Not Recovered/Not Resolved]
  - Skin fissures [Not Recovered/Not Resolved]
